FAERS Safety Report 24263013 (Version 2)
Quarter: 2024Q3

REPORT INFORMATION
  Report Type: Spontaneous
  Country: US (occurrence: US)
  Receive Date: 20240829
  Receipt Date: 20240913
  Transmission Date: 20241016
  Serious: No
  Sender: PFIZER
  Company Number: US-PFIZER INC-PV202400106469

PATIENT
  Age: 7 Year
  Sex: Female

DRUGS (2)
  1. GENOTROPIN [Suspect]
     Active Substance: SOMATROPIN
     Indication: Short stature
     Dosage: 0.3 MG, DAILY (TAPER START AT 0.3 MG DAILY FOR 1 WEEK)
     Route: 058
  2. GENOTROPIN [Suspect]
     Active Substance: SOMATROPIN
     Dosage: 0.7 MG, DAILY (THEN INCREASING TO 0.7 MG DAILY GOING FORWARD)
     Route: 058
     Dates: start: 20240818

REACTIONS (5)
  - Wrong technique in device usage process [Unknown]
  - Device delivery system issue [Unknown]
  - Injection site haemorrhage [Unknown]
  - Product dose omission in error [Unknown]
  - Device leakage [Unknown]
